FAERS Safety Report 9856610 (Version 1)
Quarter: 2014Q1

REPORT INFORMATION
  Report Type: Spontaneous
  Country: US (occurrence: US)
  Receive Date: 20140130
  Receipt Date: 20140130
  Transmission Date: 20141002
  Serious: Yes (Other)
  Sender: FDA-Public Use
  Company Number: US-GE HEALTHCARE MEDICAL DIAGNOSTICS-OSCN-PR-0905S-0253

PATIENT
  Age: 66 Year
  Sex: Male

DRUGS (15)
  1. EPOGEN [Concomitant]
  2. ZEMPLAR [Concomitant]
  3. VERAPAMIL [Concomitant]
  4. ATENOLOL [Concomitant]
  5. LASIX [Concomitant]
  6. METHOTREXATE [Concomitant]
  7. CYTOXAN [Concomitant]
  8. WARFARIN [Concomitant]
  9. DILTIAZEM [Concomitant]
  10. K-DUR [Concomitant]
  11. OMNISCAN [Suspect]
     Indication: ABDOMINAL PAIN
     Dates: start: 20040311, end: 20040311
  12. OMNISCAN [Suspect]
     Indication: STENT PLACEMENT
     Dates: start: 20040625, end: 20040625
  13. MAGNEVIST [Suspect]
     Indication: PRODUCT USED FOR UNKNOWN INDICATION
  14. PRAVASTATIN [Concomitant]
  15. METOPROLOL [Concomitant]

REACTIONS (1)
  - Nephrogenic systemic fibrosis [Not Recovered/Not Resolved]
